FAERS Safety Report 18580163 (Version 2)
Quarter: 2020Q4

REPORT INFORMATION
  Report Type: Spontaneous
  Country: JP (occurrence: JP)
  Receive Date: 20201204
  Receipt Date: 20201223
  Transmission Date: 20210114
  Serious: Yes (Other)
  Sender: FDA-Public Use
  Company Number: JP-GLAXOSMITHKLINE-JP2020JPN236919

PATIENT
  Age: 62 Year
  Sex: Female

DRUGS (5)
  1. MEPOLIZUMAB [Suspect]
     Active Substance: MEPOLIZUMAB
     Indication: ASTHMA
     Dosage: UNK
     Route: 058
  2. BETAMETHASONE. [Concomitant]
     Active Substance: BETAMETHASONE
     Indication: DEAFNESS NEUROSENSORY
     Dosage: UNK FREQUENTLY USED FOR ASTHMA ATTACKS.
  3. OMALIZUMAB (GENETICAL RECOMBINATION) [Suspect]
     Active Substance: OMALIZUMAB
     Indication: ASTHMA
     Dosage: UNK
  4. BETAMETHASONE. [Concomitant]
     Active Substance: BETAMETHASONE
     Indication: ASTHMA
     Dosage: UNK
     Route: 041
  5. BETAMETHASONE. [Concomitant]
     Active Substance: BETAMETHASONE
     Dosage: UNK
     Route: 041

REACTIONS (3)
  - Disease progression [Recovering/Resolving]
  - Deafness neurosensory [Recovering/Resolving]
  - Rash [Unknown]
